FAERS Safety Report 15591699 (Version 2)
Quarter: 2018Q4

REPORT INFORMATION
  Report Type: Spontaneous
  Country: US (occurrence: US)
  Receive Date: 20181106
  Receipt Date: 20181130
  Transmission Date: 20190205
  Serious: Yes (Other)
  Sender: FDA-Public Use
  Company Number: US-PFIZER INC-2018441613

PATIENT
  Age: 62 Year
  Sex: Female
  Weight: 68.4 kg

DRUGS (5)
  1. PAXIL [Concomitant]
     Active Substance: PAROXETINE HYDROCHLORIDE
     Indication: ANXIETY
     Dosage: 20 MG, ONCE A DAY
     Route: 048
  2. PAXIL [Concomitant]
     Active Substance: PAROXETINE HYDROCHLORIDE
     Indication: DEPRESSION
  3. LYRICA [Suspect]
     Active Substance: PREGABALIN
     Indication: FIBROMYALGIA
     Dosage: 300 MG, EVERY 12 HOURS (300 MG IN THE MORNING AND 300 MG AT NIGHT)
     Route: 048
     Dates: start: 200607
  4. LYRICA [Suspect]
     Active Substance: PREGABALIN
     Dosage: 300 MG, 2X/DAY (ONE IN THE MORNING AND ONE AT NIGHT)
  5. PAXIL [Concomitant]
     Active Substance: PAROXETINE HYDROCHLORIDE
     Indication: ANXIETY

REACTIONS (8)
  - Drug withdrawal syndrome [Unknown]
  - Product dose omission [Unknown]
  - Expired product administered [Unknown]
  - Burning sensation [Recovered/Resolved]
  - Vitamin D decreased [Unknown]
  - Loss of personal independence in daily activities [Unknown]
  - Weight increased [Unknown]
  - Drug dependence [Unknown]
